FAERS Safety Report 7395339-4 (Version None)
Quarter: 2011Q2

REPORT INFORMATION
  Report Type: 
  Country: None (occurrence: None)
  Receive Date: 20110405
  Receipt Date: 20110331
  Transmission Date: 20111010
  Serious: Yes (Other)
  Sender: FDA-Public Use
  Company Number: BE-PFIZER INC-2011027858

PATIENT
  Age: 59 Year
  Sex: Male
  Weight: 73 kg

DRUGS (3)
  1. VIAGRA [Suspect]
     Indication: ERECTILE DYSFUNCTION
     Dosage: 100 MG, 2X/DAY EVERY 3 DAYS
     Route: 048
     Dates: start: 20101015, end: 20101018
  2. CRESTOR [Concomitant]
     Dosage: 10 MG, UNK
     Route: 048
  3. CARDIOASPIRINE [Concomitant]
     Dosage: 100 MG, UNK
     Route: 048

REACTIONS (2)
  - INCORRECT DOSE ADMINISTERED [None]
  - SCOTOMA [None]
